FAERS Safety Report 17736661 (Version 2)
Quarter: 2020Q2

REPORT INFORMATION
  Report Type: Spontaneous
  Country: US (occurrence: US)
  Receive Date: 20200501
  Receipt Date: 20200615
  Transmission Date: 20200714
  Serious: No
  Sender: FDA-Public Use
  Company Number: US-BIOMARINAP-US-2020-128997

PATIENT
  Age: 21 Year
  Sex: Female
  Weight: 47.62 kg

DRUGS (1)
  1. VIMIZIM [Suspect]
     Active Substance: ELOSULFASE ALFA
     Indication: MUCOPOLYSACCHARIDOSIS IV
     Dosage: 90 MILLIGRAM, QW
     Route: 042
     Dates: start: 20160624

REACTIONS (5)
  - Vascular access complication [Recovering/Resolving]
  - Catheter site haemorrhage [Recovering/Resolving]
  - Product dose omission [Unknown]
  - Catheter site pain [Recovering/Resolving]
  - Catheter site bruise [Recovering/Resolving]

NARRATIVE: CASE EVENT DATE: 2020
